FAERS Safety Report 7941405-1 (Version None)
Quarter: 2011Q4

REPORT INFORMATION
  Report Type: 
  Country: None (occurrence: None)
  Receive Date: 20111128
  Receipt Date: 20111122
  Transmission Date: 20120403
  Serious: Yes (Death, Hospitalization)
  Sender: FDA-Public Use
  Company Number: DE-SANOFI-AVENTIS-2011SA067326

PATIENT
  Sex: Male
  Weight: 98 kg

DRUGS (18)
  1. ARAVA [Suspect]
     Dosage: INITIALLY 20 MG/DAY, SINCE JULY 2011 REDUCED TO 10 MG/DAY
     Route: 048
     Dates: start: 20100701, end: 20110701
  2. SIMVASTATIN [Concomitant]
     Dates: end: 20110101
  3. PREDNISONE [Concomitant]
     Dates: start: 20060401
  4. RESOCHIN [Concomitant]
     Dates: start: 20070201
  5. DICLOFENAC SODIUM [Concomitant]
     Dates: start: 20070201
  6. PREDNISONE [Concomitant]
     Dates: start: 20090701
  7. RAMIPRIL [Concomitant]
     Dates: end: 20110101
  8. OMEPRAZOLE [Concomitant]
     Dates: end: 20110101
  9. ETHYL FUMARATE ZINC AND DIMETHYL FUMARATE AND ETHYL FUMARATE MAGNESIUM [Concomitant]
  10. METHOTREXATE [Interacting]
     Dosage: INITIALLY 20 MG/DAY ORALLY, THEN UP TO 25 MG/DAY S.C., AT LAST 10 MG/DAY ORALLY
     Dates: start: 20060101, end: 20110701
  11. PREDNISONE [Concomitant]
     Dates: start: 20100701
  12. METOPROLOL TARTRATE [Concomitant]
     Dates: end: 20110101
  13. ACETYLSALICYLIC ACID SRT [Concomitant]
     Dates: end: 20110101
  14. INSULIN [Concomitant]
     Dates: end: 20110101
  15. GLIMEPIRIDE [Concomitant]
     Dates: end: 20110101
  16. PREDNISONE [Concomitant]
     Dates: start: 20080201
  17. SULFASALAZINE [Concomitant]
     Dates: start: 20080201
  18. SULFASALAZINE [Concomitant]
     Dates: start: 20090701, end: 20100701

REACTIONS (5)
  - HEPATIC FAILURE [None]
  - GENERAL PHYSICAL HEALTH DETERIORATION [None]
  - LEUKOPENIA [None]
  - HEPATORENAL SYNDROME [None]
  - DRUG INTERACTION [None]
